FAERS Safety Report 19745306 (Version 2)
Quarter: 2022Q1

REPORT INFORMATION
  Report Type: Spontaneous
  Country: US (occurrence: US)
  Receive Date: 20210825
  Receipt Date: 20220125
  Transmission Date: 20220424
  Serious: No
  Sender: FDA-Public Use
  Company Number: US-PFIZER INC-2020102500

PATIENT
  Age: 40 Year
  Sex: Female
  Weight: 106 kg

DRUGS (7)
  1. DOCETAXEL [Suspect]
     Active Substance: DOCETAXEL
     Indication: Breast cancer female
     Dosage: 150 MG, EVERY THREE WEEKS FOR 03 CYCLES
     Dates: start: 20110603, end: 20110715
  2. NEOSAR [Concomitant]
     Active Substance: CYCLOPHOSPHAMIDE
     Indication: Chemotherapy
     Dosage: UNK
  3. ELLENCE [Concomitant]
     Active Substance: EPIRUBICIN HYDROCHLORIDE
     Indication: Chemotherapy
     Dosage: UNK
  4. CYTOXAN [Concomitant]
     Active Substance: CYCLOPHOSPHAMIDE
     Indication: Chemotherapy
     Dosage: UNK
  5. TAMOXIFEN [Concomitant]
     Active Substance: TAMOXIFEN
     Indication: Hormone therapy
     Dosage: UNK
     Dates: start: 201110, end: 202107
  6. LISINOPRIL [Concomitant]
     Active Substance: LISINOPRIL
     Dosage: UNK
     Dates: start: 200510
  7. ZOLOFT [Concomitant]
     Active Substance: SERTRALINE HYDROCHLORIDE
     Dosage: UNK
     Dates: start: 2010, end: 20121001

REACTIONS (5)
  - Alopecia [Not Recovered/Not Resolved]
  - Madarosis [Not Recovered/Not Resolved]
  - Hair texture abnormal [Unknown]
  - Hair disorder [Unknown]
  - Hair colour changes [Unknown]

NARRATIVE: CASE EVENT DATE: 20120101
